FAERS Safety Report 7458741-8 (Version None)
Quarter: 2011Q2

REPORT INFORMATION
  Report Type: 
  Country: None (occurrence: None)
  Receive Date: 20110504
  Receipt Date: 20110428
  Transmission Date: 20111010
  Serious: Yes (Death, Hospitalization)
  Sender: FDA-Public Use
  Company Number: PHHY2011NO35696

PATIENT
  Sex: Female

DRUGS (3)
  1. METHOTREXATE [Suspect]
     Indication: LYMPHOCYTIC LEUKAEMIA
     Dosage: 12 MG, UNK
     Route: 037
     Dates: start: 20110401, end: 20110405
  2. PREDNISOLONE [Concomitant]
     Indication: LYMPHOCYTIC LEUKAEMIA
     Dosage: 20 MG, UNK
     Route: 037
     Dates: start: 20110405, end: 20110405
  3. CYTARABINE [Suspect]
     Indication: LYMPHOCYTIC LEUKAEMIA
     Dosage: 30 MG, UNK
     Route: 037
     Dates: start: 20110405, end: 20110405

REACTIONS (3)
  - DEATH [None]
  - LOSS OF CONSCIOUSNESS [None]
  - COMA [None]
